FAERS Safety Report 15008545 (Version 1)
Quarter: 2018Q2

REPORT INFORMATION
  Report Type: Spontaneous
  Country: GB (occurrence: GB)
  Receive Date: 20180613
  Receipt Date: 20180613
  Transmission Date: 20180711
  Serious: Yes (Death, Other)
  Sender: FDA-Public Use
  Company Number: GB-GILEAD-2018-0343697

PATIENT
  Age: 78 Year
  Sex: Male
  Weight: 65.7 kg

DRUGS (13)
  1. FOLIC ACID. [Concomitant]
     Active Substance: FOLIC ACID
  2. ALLOPURINOL. [Concomitant]
     Active Substance: ALLOPURINOL
  3. FUROSEMIDE. [Concomitant]
     Active Substance: FUROSEMIDE
  4. CITALOPRAM [Concomitant]
     Active Substance: CITALOPRAM HYDROBROMIDE
  5. SIMVASTATIN. [Concomitant]
     Active Substance: SIMVASTATIN
  6. FLUCLOXACILLIN [Concomitant]
     Active Substance: FLUCLOXACILLIN
  7. SALBUTAMOL [Concomitant]
     Active Substance: ALBUTEROL
  8. APIXABAN [Concomitant]
     Active Substance: APIXABAN
  9. EPCLUSA [Suspect]
     Active Substance: SOFOSBUVIR\VELPATASVIR
     Indication: HEPATITIS C
     Dosage: 1 DF, UNK
     Route: 048
     Dates: start: 20170911, end: 20180302
  10. BISOPROLOL [Concomitant]
     Active Substance: BISOPROLOL
  11. VITAMIN B COMPLEX STRONG [Concomitant]
  12. WARFARIN [Concomitant]
     Active Substance: WARFARIN
  13. PARACETAMOL [Concomitant]
     Active Substance: ACETAMINOPHEN

REACTIONS (1)
  - Death [Fatal]

NARRATIVE: CASE EVENT DATE: 20180513
